FAERS Safety Report 10154754 (Version 1)
Quarter: 2014Q2

REPORT INFORMATION
  Report Type: Spontaneous
  Country: US (occurrence: None)
  Receive Date: 20140502
  Receipt Date: 20140502
  Transmission Date: 20141212
  Serious: Yes (Hospitalization)
  Sender: FDA-Public Use
  Company Number: 2014AP002674

PATIENT
  Age: 73 Year
  Sex: Male

DRUGS (21)
  1. LAMIVUDINE [Suspect]
     Dates: start: 2011
  2. LORAZEPAM (LORAZEPAM) TABLET [Concomitant]
  3. DARUNAVIR (DARUNAVIR) [Concomitant]
  4. RITONAVIR (RITONAVIR) [Concomitant]
  5. EFAVIRENZ (EFAVIRENZ) [Concomitant]
  6. FAMOTIDINE (FAMOTIDINE) [Concomitant]
  7. TRAZODONE (TRAZODONE) [Concomitant]
  8. AMLODIPINE (AMLODIPINE) [Concomitant]
  9. NORCO (HYDROCODONE BITARTRATE, PARACETAMOL) [Concomitant]
  10. ASPIRIN (ACETYLSALICYLIC ACID) [Concomitant]
  11. ATENOLOL (ATENOLOL) [Concomitant]
  12. BUPROPION HCL (BUPROPION HYDROCHLORIDE) [Concomitant]
  13. CITALOPRAM (CITALOPRAM) [Concomitant]
  14. FRUSEMIDE /00032601/ (FUROSEMIDE) [Concomitant]
  15. HYDROCHLOROTHIAZIDE (HYDROCHLOROTHIAZIDE) [Concomitant]
  16. HYOSCYAMINE (HYOSCYAMINE) [Concomitant]
  17. SUMATRIPTAN SUCCINATE (SUMATRIPTAN SUCCINATE) [Concomitant]
  18. LISINOPRIL (LISINOPRIL) [Concomitant]
  19. MELOXICAM (MELOXICAM) [Concomitant]
  20. METHYLPHENIDATE HYDROCHLORIDE (METHYLPEHNIDATE HYDROCHLORIDE) [Concomitant]
  21. MULTIVITAMIN /00097801/ (ASCORBIC ACID, CALCIUM PANTOTHENATE, ERGOCALCIFEROL, NICOTINAMIDE, PYRIDOXINE HYDROCHLORIDE, RETINOL, RIBOFLAVIN, THIAMINE HYDROCHLORIDE)? [Concomitant]

REACTIONS (2)
  - Abdominal pain upper [None]
  - Condition aggravated [None]
